FAERS Safety Report 5651223-5 (Version None)
Quarter: 2008Q1

REPORT INFORMATION
  Report Type: 
  Country: None (occurrence: None)
  Receive Date: 20080305
  Receipt Date: 20080227
  Transmission Date: 20080703
  Serious: Yes (Death)
  Sender: FDA-Public Use
  Company Number: GB-ROCHE-550351

PATIENT

DRUGS (3)
  1. XELODA [Suspect]
     Indication: DRUG USE FOR UNKNOWN INDICATION
     Route: 065
  2. EPIRUBICIN [Concomitant]
  3. CISPLATIN [Concomitant]

REACTIONS (2)
  - DEATH [None]
  - DIARRHOEA [None]
